FAERS Safety Report 8436051-X (Version None)
Quarter: 2012Q2

REPORT INFORMATION
  Report Type: 
  Country: None (occurrence: None)
  Receive Date: 20120614
  Receipt Date: 20101112
  Transmission Date: 20120825
  Serious: Yes (Other)
  Sender: FDA-Public Use
  Company Number: US-ASTRAZENECA-2010SE54235

PATIENT
  Age: 79 Year
  Sex: Male

DRUGS (8)
  1. AMLODIPINE [Concomitant]
     Indication: HYPERTENSION
  2. HYDROCHLOROTHIAZIDE [Concomitant]
     Indication: HYPERTENSION
  3. SIMVASTATIN [Concomitant]
  4. ZOLADEX [Suspect]
     Indication: PROSTATE CANCER
     Route: 058
     Dates: start: 20000101
  5. COLCHICINE [Concomitant]
     Indication: GOUT
  6. ACCUPRIL [Concomitant]
     Indication: HYPERTENSION
  7. NAMENDA [Concomitant]
  8. ALLOPURINOL [Concomitant]
     Indication: GOUT

REACTIONS (1)
  - CEREBROVASCULAR ACCIDENT [None]
